FAERS Safety Report 23987055 (Version 3)
Quarter: 2024Q4

REPORT INFORMATION
  Report Type: Spontaneous
  Country: US (occurrence: US)
  Receive Date: 20240618
  Receipt Date: 20241217
  Transmission Date: 20250115
  Serious: No
  Sender: BRISTOL-MYERS SQUIBB COMPANY
  Company Number: US-BRISTOL-MYERS SQUIBB COMPANY-2024-097573

PATIENT
  Age: 74 Year
  Sex: Male
  Weight: 85.73 kg

DRUGS (3)
  1. REVLIMID [Suspect]
     Active Substance: LENALIDOMIDE
     Indication: Plasma cell myeloma
     Route: 048
  2. REVLIMID [Suspect]
     Active Substance: LENALIDOMIDE
     Route: 048
  3. REVLIMID [Suspect]
     Active Substance: LENALIDOMIDE
     Dosage: FREQUENCY:28
     Route: 048
     Dates: start: 20230907

REACTIONS (5)
  - Rash [Recovered/Resolved]
  - Constipation [Unknown]
  - Diarrhoea [Unknown]
  - Tooth disorder [Unknown]
  - Illness [Unknown]
